FAERS Safety Report 6810930-9 (Version None)
Quarter: 2010Q2

REPORT INFORMATION
  Report Type: 
  Country: None (occurrence: None)
  Receive Date: 20100630
  Receipt Date: 20080812
  Transmission Date: 20101027
  Serious: No
  Sender: FDA-Public Use
  Company Number: US-PFIZER INC-2008067456

PATIENT
  Sex: Female
  Weight: 56.818 kg

DRUGS (1)
  1. ESTRING [Suspect]
     Indication: ATROPHIC VULVOVAGINITIS
     Dates: start: 20080524, end: 20080701

REACTIONS (7)
  - ABDOMINAL PAIN UPPER [None]
  - CROHN'S DISEASE [None]
  - FOOD POISONING [None]
  - MALAISE [None]
  - NAUSEA [None]
  - SALMONELLOSIS [None]
  - VOMITING [None]
